FAERS Safety Report 5961914-4 (Version None)
Quarter: 2008Q4

REPORT INFORMATION
  Report Type: 
  Country: None (occurrence: None)
  Receive Date: 20081121
  Receipt Date: 20081112
  Transmission Date: 20090506
  Serious: Yes (Life-Threatening)
  Sender: FDA-Public Use
  Company Number: CA-NOVOPROD-277352

PATIENT
  Age: 78 Year
  Sex: Female

DRUGS (2)
  1. NIASTASE [Suspect]
     Indication: DRUG USE FOR UNKNOWN INDICATION
     Dosage: 120 UG/KG, UNK
     Route: 042
     Dates: start: 20080608
  2. NIASTASE [Suspect]
     Dosage: 60 UG/KG, UNK
     Route: 042
     Dates: start: 20080608

REACTIONS (2)
  - CARDIAC ARREST [None]
  - PULMONARY EMBOLISM [None]
